FAERS Safety Report 4931809-3 (Version None)
Quarter: 2006Q1

REPORT INFORMATION
  Report Type: 
  Country: None (occurrence: None)
  Receive Date: 20060303
  Receipt Date: 20051012
  Transmission Date: 20060701
  Serious: Yes (Hospitalization)
  Sender: FDA-Public Use
  Company Number: JP-BRACCO-BRO-009131

PATIENT
  Sex: Male
  Weight: 66 kg

DRUGS (11)
  1. IOPAMIRON [Suspect]
     Indication: ABDOMINAL PAIN
     Dosage: 1 ML/SEC
     Route: 042
     Dates: start: 20040311, end: 20040311
  2. IOPAMIRON [Suspect]
     Dosage: 1 ML/SEC
     Route: 042
     Dates: start: 20040311, end: 20040311
  3. METHYLPREDNISOLONE [Interacting]
     Route: 042
     Dates: start: 20050310, end: 20050310
  4. SIGMART [Concomitant]
     Route: 048
  5. FRANDOL TAPE [Concomitant]
     Route: 023
  6. ADALAT [Concomitant]
     Route: 048
  7. BUFFERIN                           /00009201/ [Concomitant]
     Route: 048
  8. PLETAL [Concomitant]
     Route: 048
  9. ISOSORBIDE MONONITRATE [Concomitant]
     Route: 048
  10. RANITAC [Concomitant]
     Route: 048
  11. SELBEX [Concomitant]
     Route: 048

REACTIONS (10)
  - ACUTE MYOCARDIAL INFARCTION [None]
  - ANAPHYLACTOID REACTION [None]
  - ARTERIOSPASM CORONARY [None]
  - BLOOD CREATINE PHOSPHOKINASE INCREASED [None]
  - CHEST PAIN [None]
  - COLD SWEAT [None]
  - CONJUNCTIVAL HYPERAEMIA [None]
  - ELECTROCARDIOGRAM ST SEGMENT ELEVATION [None]
  - PALPITATIONS [None]
  - YAWNING [None]
